FAERS Safety Report 5819865-1 (Version None)
Quarter: 2008Q3

REPORT INFORMATION
  Report Type: 
  Country: None (occurrence: None)
  Receive Date: 20080723
  Receipt Date: 20080718
  Transmission Date: 20090109
  Serious: Yes (Other)
  Sender: FDA-Public Use
  Company Number: GB-MERCK-0807GBR00085

PATIENT
  Age: 60 Year
  Sex: Male

DRUGS (3)
  1. DECADRON SRC [Suspect]
     Route: 065
  2. DOXORUBICIN [Suspect]
     Route: 065
  3. BORTEZOMIB [Suspect]
     Route: 065

REACTIONS (1)
  - THROMBOCYTOPENIA [None]
